FAERS Safety Report 17508347 (Version 1)
Quarter: 2020Q1

REPORT INFORMATION
  Report Type: Spontaneous
  Country: PL (occurrence: PL)
  Receive Date: 20200306
  Receipt Date: 20200306
  Transmission Date: 20200409
  Serious: Yes (Hospitalization, Other)
  Sender: FDA-Public Use
  Company Number: PL-BEH-2020113878

PATIENT
  Sex: Male

DRUGS (2)
  1. PRIVIGEN [Suspect]
     Active Substance: HUMAN IMMUNOGLOBULIN G
     Indication: CHRONIC INFLAMMATORY DEMYELINATING POLYRADICULONEUROPATHY
     Dosage: 20 GRAM
     Route: 042
     Dates: start: 20191003, end: 20191007
  2. PRIVIGEN [Suspect]
     Active Substance: HUMAN IMMUNOGLOBULIN G
     Dosage: 10 GRAM
     Route: 042
     Dates: start: 20191003, end: 20191007

REACTIONS (3)
  - Erythema [Recovering/Resolving]
  - Rash [Recovering/Resolving]
  - Extremity necrosis [Unknown]
